FAERS Safety Report 14765690 (Version 3)
Quarter: 2018Q2

REPORT INFORMATION
  Report Type: Report from Study
  Country: None (occurrence: SE)
  Receive Date: 20180416
  Receipt Date: 20180601
  Transmission Date: 20180711
  Serious: Yes (Life-Threatening, Hospitalization)
  Sender: FDA-Public Use
  Company Number: SE-ABBVIE-18P-150-2322613-00

PATIENT
  Age: 32 Year
  Sex: Male
  Weight: 83 kg

DRUGS (7)
  1. HUMIRA [Suspect]
     Active Substance: ADALIMUMAB
     Indication: COLITIS ULCERATIVE
     Route: 058
     Dates: start: 20070216, end: 20170901
  2. CORTIMENT [Concomitant]
     Indication: COLITIS ULCERATIVE
     Route: 048
     Dates: start: 20170910
  3. CORTIMENT [Concomitant]
     Route: 048
     Dates: start: 20170116, end: 20170409
  4. CALCISHEW-D3 [Concomitant]
     Indication: COLITIS ULCERATIVE
     Dosage: 500MG/400I
     Route: 048
     Dates: start: 20161104
  5. DIMOR [Concomitant]
     Active Substance: LOPERAMIDE
     Indication: COLECTOMY
     Route: 048
     Dates: start: 2006
  6. DIMOR [Concomitant]
     Active Substance: LOPERAMIDE
     Indication: INTESTINAL ANASTOMOSIS
  7. CORTIMENT [Concomitant]
     Route: 048
     Dates: start: 20160921, end: 20170105

REACTIONS (1)
  - Gastroenteritis viral [Recovered/Resolved]

NARRATIVE: CASE EVENT DATE: 20171220
